FAERS Safety Report 7087947-5 (Version None)
Quarter: 2010Q4

REPORT INFORMATION
  Report Type: 
  Country: None (occurrence: None)
  Receive Date: 20101108
  Receipt Date: 20101027
  Transmission Date: 20110411
  Serious: Yes (Hospitalization, Other)
  Sender: FDA-Public Use
  Company Number: ZA-US-EMD SERONO, INC.-7010832

PATIENT
  Sex: Female
  Weight: 52 kg

DRUGS (1)
  1. REBIF [Suspect]
     Indication: RELAPSING-REMITTING MULTIPLE SCLEROSIS
     Route: 058
     Dates: start: 20090601

REACTIONS (4)
  - GRANULOMA [None]
  - HYPERSENSITIVITY [None]
  - PARESIS [None]
  - PLEURAL EFFUSION [None]
